FAERS Safety Report 6591140-X (Version None)
Quarter: 2010Q1

REPORT INFORMATION
  Report Type: 
  Country: None (occurrence: None)
  Receive Date: 20100219
  Receipt Date: 20090601
  Transmission Date: 20100710
  Serious: No
  Sender: FDA-Public Use
  Company Number: US-BRISTOL-MYERS SQUIBB COMPANY-14649875

PATIENT
  Sex: Male

DRUGS (1)
  1. KENALOG [Suspect]
     Dosage: MAY-09
     Dates: start: 20060101

REACTIONS (1)
  - MUSCLE SPASMS [None]
